FAERS Safety Report 9076410 (Version 1)
Quarter: 2013Q1

REPORT INFORMATION
  Report Type: Report from Study
  Country: US (occurrence: US)
  Receive Date: 20130129
  Receipt Date: 20130129
  Transmission Date: 20140127
  Serious: No
  Sender: FDA-Public Use
  Company Number: US-ABBOTT-12P-163-0947046-00

PATIENT
  Sex: Female

DRUGS (2)
  1. HUMIRA 40 MG/0.8 ML PEN [Suspect]
     Indication: RHEUMATOID ARTHRITIS
     Dosage: 07 JUN2012 1ST SHIPPED FROM ACCREDO
  2. HUMIRA 40 MG/0.8 ML PEN [Suspect]

REACTIONS (4)
  - Drug dose omission [Unknown]
  - Rheumatoid arthritis [Recovering/Resolving]
  - Injection site pain [Unknown]
  - Injection site bruising [Unknown]
